FAERS Safety Report 6182527-8 (Version None)
Quarter: 2009Q2

REPORT INFORMATION
  Report Type: 
  Country: None (occurrence: None)
  Receive Date: 20090507
  Receipt Date: 20090429
  Transmission Date: 20091009
  Serious: Yes (Other)
  Sender: FDA-Public Use
  Company Number: US-BAYER-200911353BCC

PATIENT
  Age: 45 Year
  Sex: Male

DRUGS (4)
  1. ASPIRIN [Suspect]
     Indication: DRUG USE FOR UNKNOWN INDICATION
     Route: 048
  2. PLAVIX [Suspect]
     Indication: DRUG USE FOR UNKNOWN INDICATION
     Route: 048
  3. HYDROCHLOROTHIAZIDE W/IRBESARTAN [Concomitant]
     Dosage: 300/12.5 MG
  4. ROSUVASTATIN CALCIUM [Concomitant]

REACTIONS (2)
  - EPISTAXIS [None]
  - HAEMORRHOIDAL HAEMORRHAGE [None]
